FAERS Safety Report 9940570 (Version 1)
Quarter: 2014Q1

REPORT INFORMATION
  Report Type: Spontaneous
  Country: FI (occurrence: FI)
  Receive Date: 20140303
  Receipt Date: 20140303
  Transmission Date: 20141002
  Serious: Yes (Death)
  Sender: FDA-Public Use
  Company Number: FI-MYLANLABS-2014S1003880

PATIENT
  Age: 77 Year
  Sex: Female

DRUGS (7)
  1. CHLORDIAZEPOXIDE [Suspect]
     Indication: POISONING DELIBERATE
     Dosage: SUBSTANTIAL DOSE
     Route: 065
  2. OXAZEPAM [Suspect]
     Indication: POISONING DELIBERATE
     Dosage: SUBSTANTIAL DOSE
     Route: 065
  3. DIAZEPAM [Suspect]
     Indication: POISONING DELIBERATE
     Route: 065
  4. DIAZEPAM [Suspect]
     Indication: OFF LABEL USE
     Route: 065
  5. PARACETAMOL [Concomitant]
     Route: 065
  6. CARBAMAZEPINE [Concomitant]
     Route: 065
  7. MORPHINE [Concomitant]
     Route: 065

REACTIONS (6)
  - Poisoning deliberate [Fatal]
  - Pre-existing disease [Fatal]
  - Intentional overdose [Fatal]
  - Loss of consciousness [Recovered/Resolved]
  - Respiratory depression [Recovered/Resolved]
  - Convulsion [Not Recovered/Not Resolved]
